FAERS Safety Report 5778685-7 (Version None)
Quarter: 2008Q2

REPORT INFORMATION
  Report Type: 
  Country: None (occurrence: None)
  Receive Date: 20080601
  Receipt Date: 20080109
  Transmission Date: 20081010
  Serious: No
  Sender: FDA-Public Use
  Company Number: US200801001614

PATIENT
  Age: 82 Year
  Sex: Female
  Weight: 72.6 kg

DRUGS (8)
  1. BYETTA [Suspect]
     Indication: TYPE 2 DIABETES MELLITUS
     Dosage: 5 UG, 2/D, SUBCUTANEOUS
     Route: 058
     Dates: start: 20070901
  2. GLYBURIDE [Concomitant]
  3. STARLIX [Concomitant]
  4. COUMADIN [Concomitant]
  5. COZAAR [Concomitant]
  6. NORVASC [Concomitant]
  7. DIGOXIN [Concomitant]
  8. CORDARONE [Concomitant]

REACTIONS (2)
  - ATRIAL FIBRILLATION [None]
  - TREMOR [None]
